FAERS Safety Report 14240546 (Version 1)
Quarter: 2017Q4

REPORT INFORMATION
  Report Type: Spontaneous
  Country: DK (occurrence: DK)
  Receive Date: 20171130
  Receipt Date: 20171130
  Transmission Date: 20180321
  Serious: Yes (Hospitalization, Other)
  Sender: FDA-Public Use
  Company Number: PHHY2017DK081092

PATIENT
  Age: 72 Year
  Sex: Male

DRUGS (1)
  1. DESFERAL [Suspect]
     Active Substance: DEFEROXAMINE MESYLATE
     Indication: PRODUCT USED FOR UNKNOWN INDICATION
     Dosage: 10 G, (OVER FOUR DAYS VIA PUMP)
     Route: 065
     Dates: start: 20161122, end: 20170228

REACTIONS (10)
  - Retinal disorder [Unknown]
  - Eye disorder [Unknown]
  - Malaise [Unknown]
  - Visual impairment [Unknown]
  - Sensory disturbance [Unknown]
  - Dyspnoea [Unknown]
  - Visual acuity reduced [Unknown]
  - Pulmonary oedema [Unknown]
  - Discomfort [Unknown]
  - Retinopathy [Unknown]

NARRATIVE: CASE EVENT DATE: 201612
